FAERS Safety Report 10588118 (Version 1)
Quarter: 2014Q4

REPORT INFORMATION
  Report Type: Spontaneous
  Country: US (occurrence: US)
  Receive Date: 20141117
  Receipt Date: 20141117
  Transmission Date: 20150529
  Serious: Yes (Other)
  Sender: FDA-Public Use
  Company Number: US-SHIRE-US201407776

PATIENT
  Age: 53 Year
  Sex: Female

DRUGS (1)
  1. FIRAZYR [Suspect]
     Active Substance: ICATIBANT ACETATE
     Indication: HEREDITARY ANGIOEDEMA
     Dosage: 30 MG, AS REQ^D, PRN
     Route: 058
     Dates: start: 20141106

REACTIONS (2)
  - Loss of consciousness [Unknown]
  - Localised oedema [Unknown]

NARRATIVE: CASE EVENT DATE: 20141106
